FAERS Safety Report 25325031 (Version 1)
Quarter: 2025Q2

REPORT INFORMATION
  Report Type: Spontaneous
  Country: FR (occurrence: FR)
  Receive Date: 20250516
  Receipt Date: 20250516
  Transmission Date: 20250716
  Serious: Yes (Life-Threatening)
  Sender: MYLAN
  Company Number: None

PATIENT
  Age: 44 Year
  Sex: Female

DRUGS (40)
  1. DEXAMETHASONE [Suspect]
     Active Substance: DEXAMETHASONE
     Indication: General anaesthesia
     Dates: start: 20250412, end: 20250412
  2. DEXAMETHASONE [Suspect]
     Active Substance: DEXAMETHASONE
     Route: 042
     Dates: start: 20250412, end: 20250412
  3. DEXAMETHASONE [Suspect]
     Active Substance: DEXAMETHASONE
     Route: 042
     Dates: start: 20250412, end: 20250412
  4. DEXAMETHASONE [Suspect]
     Active Substance: DEXAMETHASONE
     Dates: start: 20250412, end: 20250412
  5. PROPOFOL [Suspect]
     Active Substance: PROPOFOL
     Indication: General anaesthesia
     Dates: start: 20250412, end: 20250412
  6. PROPOFOL [Suspect]
     Active Substance: PROPOFOL
     Route: 042
     Dates: start: 20250412, end: 20250412
  7. PROPOFOL [Suspect]
     Active Substance: PROPOFOL
     Route: 042
     Dates: start: 20250412, end: 20250412
  8. PROPOFOL [Suspect]
     Active Substance: PROPOFOL
     Dates: start: 20250412, end: 20250412
  9. CISATRACURIUM [Suspect]
     Active Substance: CISATRACURIUM
     Indication: General anaesthesia
     Dates: start: 20250412, end: 20250412
  10. CISATRACURIUM [Suspect]
     Active Substance: CISATRACURIUM
     Route: 042
     Dates: start: 20250412, end: 20250412
  11. CISATRACURIUM [Suspect]
     Active Substance: CISATRACURIUM
     Route: 042
     Dates: start: 20250412, end: 20250412
  12. CISATRACURIUM [Suspect]
     Active Substance: CISATRACURIUM
     Dates: start: 20250412, end: 20250412
  13. AMOXICILLIN [Suspect]
     Active Substance: AMOXICILLIN
     Indication: Antibiotic prophylaxis
     Dates: start: 20250412, end: 20250412
  14. AMOXICILLIN [Suspect]
     Active Substance: AMOXICILLIN
     Route: 042
     Dates: start: 20250412, end: 20250412
  15. AMOXICILLIN [Suspect]
     Active Substance: AMOXICILLIN
     Route: 042
     Dates: start: 20250412, end: 20250412
  16. AMOXICILLIN [Suspect]
     Active Substance: AMOXICILLIN
     Dates: start: 20250412, end: 20250412
  17. CLAVULANIC ACID [Suspect]
     Active Substance: CLAVULANIC ACID
     Indication: Antibiotic prophylaxis
     Dates: start: 20250412, end: 20250412
  18. CLAVULANIC ACID [Suspect]
     Active Substance: CLAVULANIC ACID
     Route: 042
     Dates: start: 20250412, end: 20250412
  19. CLAVULANIC ACID [Suspect]
     Active Substance: CLAVULANIC ACID
     Route: 042
     Dates: start: 20250412, end: 20250412
  20. CLAVULANIC ACID [Suspect]
     Active Substance: CLAVULANIC ACID
     Dates: start: 20250412, end: 20250412
  21. ACUPAN [Suspect]
     Active Substance: NEFOPAM HYDROCHLORIDE
     Indication: Procedural pain
     Dates: start: 20250412, end: 20250412
  22. ACUPAN [Suspect]
     Active Substance: NEFOPAM HYDROCHLORIDE
     Route: 042
     Dates: start: 20250412, end: 20250412
  23. ACUPAN [Suspect]
     Active Substance: NEFOPAM HYDROCHLORIDE
     Route: 042
     Dates: start: 20250412, end: 20250412
  24. ACUPAN [Suspect]
     Active Substance: NEFOPAM HYDROCHLORIDE
     Dates: start: 20250412, end: 20250412
  25. TRAMADOL HYDROCHLORIDE [Suspect]
     Active Substance: TRAMADOL HYDROCHLORIDE
     Indication: Procedural pain
     Dates: start: 20250412, end: 20250412
  26. TRAMADOL HYDROCHLORIDE [Suspect]
     Active Substance: TRAMADOL HYDROCHLORIDE
     Route: 042
     Dates: start: 20250412, end: 20250412
  27. TRAMADOL HYDROCHLORIDE [Suspect]
     Active Substance: TRAMADOL HYDROCHLORIDE
     Route: 042
     Dates: start: 20250412, end: 20250412
  28. TRAMADOL HYDROCHLORIDE [Suspect]
     Active Substance: TRAMADOL HYDROCHLORIDE
     Dates: start: 20250412, end: 20250412
  29. ACETAMINOPHEN [Suspect]
     Active Substance: ACETAMINOPHEN
     Indication: Procedural pain
     Dates: start: 20250412, end: 20250412
  30. ACETAMINOPHEN [Suspect]
     Active Substance: ACETAMINOPHEN
     Route: 042
     Dates: start: 20250412, end: 20250412
  31. ACETAMINOPHEN [Suspect]
     Active Substance: ACETAMINOPHEN
     Route: 042
     Dates: start: 20250412, end: 20250412
  32. ACETAMINOPHEN [Suspect]
     Active Substance: ACETAMINOPHEN
     Dates: start: 20250412, end: 20250412
  33. KETAMINE [Suspect]
     Active Substance: KETAMINE
     Indication: General anaesthesia
     Dates: start: 20250412, end: 20250412
  34. KETAMINE [Suspect]
     Active Substance: KETAMINE
     Route: 042
     Dates: start: 20250412, end: 20250412
  35. KETAMINE [Suspect]
     Active Substance: KETAMINE
     Route: 042
     Dates: start: 20250412, end: 20250412
  36. KETAMINE [Suspect]
     Active Substance: KETAMINE
     Dates: start: 20250412, end: 20250412
  37. DROPERIDOL [Suspect]
     Active Substance: DROPERIDOL
     Indication: General anaesthesia
     Dates: start: 20250412, end: 20250412
  38. DROPERIDOL [Suspect]
     Active Substance: DROPERIDOL
     Route: 042
     Dates: start: 20250412, end: 20250412
  39. DROPERIDOL [Suspect]
     Active Substance: DROPERIDOL
     Route: 042
     Dates: start: 20250412, end: 20250412
  40. DROPERIDOL [Suspect]
     Active Substance: DROPERIDOL
     Dates: start: 20250412, end: 20250412

REACTIONS (1)
  - Anaphylactic shock [Recovered/Resolved]

NARRATIVE: CASE EVENT DATE: 20250412
